FAERS Safety Report 21113841 (Version 2)
Quarter: 2022Q3

REPORT INFORMATION
  Report Type: Spontaneous
  Country: US (occurrence: US)
  Receive Date: 20220721
  Receipt Date: 20220826
  Transmission Date: 20221026
  Serious: Yes (Other)
  Sender: FDA-Public Use
  Company Number: US-PFIZER INC-PV202200026948

PATIENT
  Age: 56 Year
  Sex: Male

DRUGS (1)
  1. XELJANZ XR [Suspect]
     Active Substance: TOFACITINIB CITRATE
     Indication: Rheumatoid arthritis
     Dosage: 11 MG, 1X/DAY
     Route: 048
     Dates: start: 20220708

REACTIONS (5)
  - Pneumonia [Unknown]
  - Product dose omission issue [Unknown]
  - Bronchitis [Unknown]
  - Arthritis [Recovered/Resolved]
  - Discouragement [Unknown]

NARRATIVE: CASE EVENT DATE: 20220715
